FAERS Safety Report 19899103 (Version 1)
Quarter: 2021Q3

REPORT INFORMATION
  Report Type: Spontaneous
  Country: GB (occurrence: GB)
  Receive Date: 20210930
  Receipt Date: 20210930
  Transmission Date: 20211014
  Serious: Yes (Hospitalization)
  Sender: FDA-Public Use
  Company Number: GB-TEVA-2021-GB-1958028

PATIENT
  Age: 75 Year
  Sex: Female
  Weight: 64 kg

DRUGS (3)
  1. ADCAL?D3 [Suspect]
     Active Substance: CALCIUM CARBONATE\CHOLECALCIFEROL
     Indication: VACCINATION COMPLICATION
     Route: 065
  2. OMEPRAZOLE. [Suspect]
     Active Substance: OMEPRAZOLE
     Indication: VACCINATION COMPLICATION
     Dosage: 40 MILLIGRAM DAILY;
     Route: 048
     Dates: start: 20210908, end: 202109
  3. PREDNISOLONE. [Suspect]
     Active Substance: PREDNISOLONE
     Indication: VACCINATION COMPLICATION
     Dosage: 85 MILLIGRAM DAILY;
     Route: 048
     Dates: start: 20210908, end: 202109

REACTIONS (4)
  - Dizziness [Recovered/Resolved with Sequelae]
  - Nausea [Recovered/Resolved with Sequelae]
  - Hepatitis [Recovered/Resolved with Sequelae]
  - Headache [Recovered/Resolved with Sequelae]

NARRATIVE: CASE EVENT DATE: 20210710
